FAERS Safety Report 9494688 (Version 1)
Quarter: 2013Q3

REPORT INFORMATION
  Report Type: Spontaneous
  Country: US (occurrence: None)
  Receive Date: 20130830
  Receipt Date: 20130830
  Transmission Date: 20140515
  Serious: Yes (Other)
  Sender: FDA-Public Use
  Company Number: None

PATIENT
  Age: 65 Year
  Sex: Female
  Weight: 65.77 kg

DRUGS (1)
  1. NOSTRILLA [Suspect]
     Indication: NASAL CONGESTION
     Dosage: 2 SPRAYS IN EACH NOSTRIL  TWICE DAILY INHALATION
     Route: 055
     Dates: start: 20130823, end: 20130824

REACTIONS (3)
  - Rhinalgia [None]
  - Product quality issue [None]
  - Nasal discomfort [None]
